FAERS Safety Report 9717734 (Version 1)
Quarter: 2013Q4

REPORT INFORMATION
  Report Type: Spontaneous
  Country: CA (occurrence: CA)
  Receive Date: 20131127
  Receipt Date: 20131127
  Transmission Date: 20140711
  Serious: Yes (Death)
  Sender: FDA-Public Use
  Company Number: CA-GLAXOSMITHKLINE-A1018630A

PATIENT
  Age: 73 Year
  Sex: Male
  Weight: 79.5 kg

DRUGS (16)
  1. ADVAIR [Suspect]
     Indication: CHRONIC OBSTRUCTIVE PULMONARY DISEASE
     Dosage: 1PUFF TWICE PER DAY
     Route: 055
     Dates: start: 2006
  2. VENTOLIN [Concomitant]
  3. PLAVIX [Concomitant]
     Indication: ANTICOAGULANT THERAPY
     Dosage: 75MG PER DAY
  4. MICARDIS PLUS [Concomitant]
     Indication: HYPERTENSION
  5. PARIET [Concomitant]
     Indication: GASTROOESOPHAGEAL REFLUX DISEASE
     Dosage: 20MG PER DAY
  6. AMLODIPINE [Concomitant]
     Indication: HYPERTENSION
     Dosage: 5MG PER DAY
  7. JANUVIA [Concomitant]
     Indication: DIABETES MELLITUS
     Dosage: 100MG PER DAY
  8. ATORVASTATIN [Concomitant]
     Indication: BLOOD CHOLESTEROL
     Dosage: 10MG PER DAY
  9. GLYBURIDE [Concomitant]
     Indication: DIABETES MELLITUS
     Dosage: 5MG PER DAY
  10. RABEPRAZOLE [Concomitant]
     Indication: GASTROOESOPHAGEAL REFLUX DISEASE
     Dosage: 20MG PER DAY
  11. METFORMIN [Concomitant]
     Dosage: 500MG THREE TIMES PER DAY
  12. CELEXIN [Concomitant]
  13. VITAMIN D [Concomitant]
     Dosage: 1000IU PER DAY
  14. CALCIUM + MAGNESIUM + ZINC [Concomitant]
  15. SPIRIVA [Concomitant]
  16. VITAMIN B/C + ZINC [Concomitant]

REACTIONS (3)
  - Neoplasm malignant [Fatal]
  - Dyspnoea [Not Recovered/Not Resolved]
  - Drug ineffective [Unknown]
